FAERS Safety Report 9396944 (Version 1)
Quarter: 2013Q3

REPORT INFORMATION
  Report Type: Spontaneous
  Country: US (occurrence: US)
  Receive Date: 20130712
  Receipt Date: 20130712
  Transmission Date: 20140515
  Serious: No
  Sender: FDA-Public Use
  Company Number: US-BIOGENIDEC-2013BI062771

PATIENT
  Age: 48 Year
  Sex: Female

DRUGS (3)
  1. TYSABRI [Suspect]
     Indication: MULTIPLE SCLEROSIS
     Route: 042
     Dates: start: 20120711
  2. TRAMADOL [Concomitant]
     Indication: PAIN IN EXTREMITY
     Dates: start: 2012, end: 2012
  3. VESICARE [Concomitant]
     Indication: URINARY INCONTINENCE
     Dates: start: 2006

REACTIONS (1)
  - Pain in extremity [Not Recovered/Not Resolved]
